FAERS Safety Report 5265543-X (Version None)
Quarter: 2007Q1

REPORT INFORMATION
  Report Type: 
  Country: None (occurrence: None)
  Receive Date: 20070314
  Receipt Date: 20070302
  Transmission Date: 20070707
  Serious: Yes (Other)
  Sender: FDA-Public Use
  Company Number: US-PFIZER INC-2007017705

PATIENT
  Sex: Female

DRUGS (1)
  1. CHANTIX [Suspect]

REACTIONS (5)
  - ANOREXIA [None]
  - APATHY [None]
  - ASTHENIA [None]
  - INSOMNIA [None]
  - WEIGHT DECREASED [None]
